FAERS Safety Report 5093857-5 (Version None)
Quarter: 2006Q3

REPORT INFORMATION
  Report Type: 
  Country: None (occurrence: None)
  Receive Date: 20060831
  Receipt Date: 20060411
  Transmission Date: 20061208
  Serious: Yes (Hospitalization)
  Sender: FDA-Public Use
  Company Number: US-BAYER-200612419BWH

PATIENT
  Age: 65 Year
  Sex: Female
  Weight: 93 kg

DRUGS (9)
  1. NEXAVAR [Suspect]
     Indication: METASTATIC RENAL CELL CARCINOMA
     Dosage: TOTAL DAILY DOSE: 800 MG  UNIT DOSE: 200 MG
     Route: 048
     Dates: start: 20060322, end: 20060328
  2. TYLENOL [Concomitant]
  3. LISINOPRIL [Concomitant]
  4. METFORMIN [Concomitant]
     Dosage: TOTAL DAILY DOSE: 2000 MG
  5. ATENOLOL [Concomitant]
     Dosage: TOTAL DAILY DOSE: 50 MG
  6. HYDROCHLOROTHIAZIDE [Concomitant]
  7. MECLIZINE [Concomitant]
  8. GABAPENTIN [Concomitant]
     Dosage: TOTAL DAILY DOSE: 300 MG
  9. CLONIDINE [Concomitant]
     Dosage: TOTAL DAILY DOSE: 0.6 MG

REACTIONS (13)
  - ARTHRALGIA [None]
  - BLOOD CHOLESTEROL INCREASED [None]
  - BLOOD GLUCOSE INCREASED [None]
  - DIARRHOEA [None]
  - DYSPNOEA [None]
  - HEADACHE [None]
  - HYPERTENSION [None]
  - NAUSEA [None]
  - OEDEMA PERIPHERAL [None]
  - RASH PRURITIC [None]
  - SWELLING FACE [None]
  - VOMITING [None]
  - WEIGHT DECREASED [None]
